FAERS Safety Report 8019298-6 (Version None)
Quarter: 2012Q1

REPORT INFORMATION
  Report Type: 
  Country: None (occurrence: None)
  Receive Date: 20120103
  Receipt Date: 20111220
  Transmission Date: 20120608
  Serious: Yes (Other)
  Sender: FDA-Public Use
  Company Number: DE-ELI_LILLY_AND_COMPANY-DE201112002043

PATIENT
  Age: 63 Year
  Sex: Female

DRUGS (10)
  1. PANTOPRAZOLE [Concomitant]
  2. PEMETREXED [Suspect]
     Indication: NON-SMALL CELL LUNG CANCER
     Dosage: 500 MG/M2, ONCE EVERY THREE WEEKS
     Route: 042
     Dates: start: 20100204, end: 20100224
  3. FOLIC ACID [Concomitant]
  4. DEXAMETHASONE [Concomitant]
  5. ALBUTEROL SULFATE AUTOHALER [Concomitant]
  6. PAZOPANIB HYDROCHLORIDE [Suspect]
     Indication: NON-SMALL CELL LUNG CANCER
     Dosage: 800 MG, QD PER OS
     Route: 048
     Dates: start: 20100204, end: 20100224
  7. ENOXAPARIN [Concomitant]
  8. METOCLOPRAMIDE [Concomitant]
  9. ACETAMINOPHEN [Concomitant]
  10. ZOLEDRONIC ACID [Concomitant]

REACTIONS (2)
  - HEPATIC ENZYME INCREASED [None]
  - BLOOD BILIRUBIN INCREASED [None]
